FAERS Safety Report 10202960 (Version 2)
Quarter: 2014Q2

REPORT INFORMATION
  Report Type: Spontaneous
  Country: US (occurrence: US)
  Receive Date: 20140528
  Receipt Date: 20140529
  Transmission Date: 20141212
  Serious: No
  Sender: FDA-Public Use
  Company Number: US-009507513-1405USA010963

PATIENT
  Age: 2 Year
  Sex: Female

DRUGS (2)
  1. CLARITIN CHEWABLE TABLETS [Suspect]
     Indication: PRODUCT USED FOR UNKNOWN INDICATION
     Dosage: 5 MG, BID, AT 9:30 AM AND 10:30 AM
     Route: 048
  2. CLARITIN CHEWABLE TABLETS [Suspect]
     Dosage: UNK, UNKNOWN
     Route: 048

REACTIONS (1)
  - Accidental overdose [Unknown]
